FAERS Safety Report 19186200 (Version 1)
Quarter: 2021Q2

REPORT INFORMATION
  Report Type: Spontaneous
  Country: MX (occurrence: MX)
  Receive Date: 20210427
  Receipt Date: 20210427
  Transmission Date: 20210717
  Serious: Yes (Other)
  Sender: FDA-Public Use
  Company Number: MX-ROCHE-2817932

PATIENT
  Age: 55 Year
  Sex: Female
  Weight: 92 kg

DRUGS (10)
  1. TRASTUZUMAB. [Suspect]
     Active Substance: TRASTUZUMAB
     Indication: MALIGNANT MEDIASTINAL NEOPLASM
  2. CYCLOPHOSPHAMIDE. [Concomitant]
     Active Substance: CYCLOPHOSPHAMIDE
  3. TRASTUZUMAB. [Suspect]
     Active Substance: TRASTUZUMAB
     Indication: RETROPERITONEAL CANCER
  4. EPIRUBICIN [Concomitant]
     Active Substance: EPIRUBICIN
  5. DOCETAXEL. [Concomitant]
     Active Substance: DOCETAXEL
  6. 5 FLUOROURACIL [Concomitant]
     Active Substance: FLUOROURACIL
  7. TRASTUZUMAB. [Suspect]
     Active Substance: TRASTUZUMAB
     Indication: BREAST CANCER
     Dosage: DOSE AND FREQUENCY WERE NOT REPORTED.
     Route: 042
     Dates: start: 20181209
  8. TAXOL [Concomitant]
     Active Substance: PACLITAXEL
  9. TRASTUZUMAB. [Suspect]
     Active Substance: TRASTUZUMAB
     Indication: LYMPHOMA
  10. TRASTUZUMAB. [Suspect]
     Active Substance: TRASTUZUMAB
     Indication: LUNG NEOPLASM MALIGNANT
     Dosage: 735 MG IV SINGLE IMPREGNATION DOSE + 550 MG IV D1 MAINTENANCE DOSE
     Route: 042
     Dates: start: 20210225

REACTIONS (2)
  - Pleural effusion [Unknown]
  - Adenocarcinoma [Unknown]

NARRATIVE: CASE EVENT DATE: 202012
